FAERS Safety Report 5722934-8 (Version None)
Quarter: 2008Q2

REPORT INFORMATION
  Report Type: 
  Country: None (occurrence: None)
  Receive Date: 20080430
  Receipt Date: 20080422
  Transmission Date: 20081010
  Serious: Yes (Hospitalization)
  Sender: FDA-Public Use
  Company Number: GB-RANBAXY-2008RR-14648

PATIENT

DRUGS (11)
  1. ATORVASTATIN CALCIUM [Suspect]
  2. FLUCONAZOLE 100MG CAPSULES [Suspect]
  3. ALENDRONATE SODIUM [Concomitant]
  4. ASPIRIN [Concomitant]
  5. BISOPROLOL FUMARATE [Concomitant]
  6. CALCICHEW D3 [Concomitant]
  7. FERRIC SULPHATE [Concomitant]
  8. FUROSEMIDE [Concomitant]
  9. ISOSORBIDE MONONITRATE [Concomitant]
  10. LANSOPRAZOLE [Concomitant]
  11. NICORANDIL [Concomitant]

REACTIONS (2)
  - JAUNDICE [None]
  - PANCREATITIS [None]
